FAERS Safety Report 18851409 (Version 1)
Quarter: 2021Q1

REPORT INFORMATION
  Report Type: Spontaneous
  Country: US (occurrence: US)
  Receive Date: 20210205
  Receipt Date: 20210205
  Transmission Date: 20210420
  Serious: Yes (Other)
  Sender: FDA-Public Use
  Company Number: NVSC2021US022204

PATIENT
  Sex: Male
  Weight: 114.74 kg

DRUGS (4)
  1. DEFERASIROX. [Suspect]
     Active Substance: DEFERASIROX
     Dosage: UNK
     Route: 065
     Dates: start: 20200109, end: 20200302
  2. DEFERASIROX. [Suspect]
     Active Substance: DEFERASIROX
     Dosage: UNK
     Route: 065
     Dates: start: 20200303, end: 20201026
  3. EPOETIN [Suspect]
     Active Substance: ERYTHROPOIETIN
     Indication: PRODUCT USED FOR UNKNOWN INDICATION
     Dosage: UNK
     Route: 065
     Dates: start: 20200210, end: 20201123
  4. DEFERASIROX. [Suspect]
     Active Substance: DEFERASIROX
     Indication: PRODUCT USED FOR UNKNOWN INDICATION
     Dosage: UNK
     Route: 065
     Dates: start: 20191104, end: 20200108

REACTIONS (1)
  - Cerebrovascular accident [Unknown]
